FAERS Safety Report 5891944-2 (Version None)
Quarter: 2008Q3

REPORT INFORMATION
  Report Type: 
  Country: None (occurrence: None)
  Receive Date: 20080922
  Receipt Date: 20080911
  Transmission Date: 20090109
  Serious: Yes (Other)
  Sender: FDA-Public Use
  Company Number: HU-AMGEN-US308227

PATIENT
  Age: 27 Year
  Sex: Female

DRUGS (1)
  1. ENBREL [Suspect]
     Indication: RHEUMATOID ARTHRITIS
     Route: 058
     Dates: start: 20080301

REACTIONS (4)
  - ALLERGIC RESPIRATORY SYMPTOM [None]
  - COITAL BLEEDING [None]
  - DYSMENORRHOEA [None]
  - WEIGHT INCREASED [None]
